FAERS Safety Report 10494726 (Version 1)
Quarter: 2014Q4

REPORT INFORMATION
  Report Type: Spontaneous
  Country: BE (occurrence: BE)
  Receive Date: 20141003
  Receipt Date: 20141003
  Transmission Date: 20150528
  Serious: Yes (Other)
  Sender: FDA-Public Use
  Company Number: BE-UCBSA-2014013906

PATIENT

DRUGS (1)
  1. METHYLPHENIDATE HYDROCHLORIDE. [Suspect]
     Active Substance: METHYLPHENIDATE HYDROCHLORIDE
     Indication: PRODUCT USED FOR UNKNOWN INDICATION
     Dosage: 10 MG, WILL OPEN TO TAKE ONLY LITTLE BALLS
     Route: 048

REACTIONS (3)
  - Wrong technique in drug usage process [Unknown]
  - Reaction to drug excipients [Unknown]
  - Swollen tongue [Unknown]
